FAERS Safety Report 6885964-9 (Version None)
Quarter: 2010Q3

REPORT INFORMATION
  Report Type: 
  Country: None (occurrence: None)
  Receive Date: 20100729
  Receipt Date: 20080605
  Transmission Date: 20110219
  Serious: No
  Sender: FDA-Public Use
  Company Number: US-PFIZER INC-2008049179

PATIENT
  Sex: Female
  Weight: 46.4 kg

DRUGS (3)
  1. ACCUPRIL [Suspect]
     Indication: HYPERTENSION
     Dates: start: 20080101
  2. NIASPAN [Concomitant]
  3. ZOCOR [Concomitant]

REACTIONS (3)
  - DYSPHAGIA [None]
  - RETCHING [None]
  - VOMITING [None]
